FAERS Safety Report 25528789 (Version 1)
Quarter: 2025Q3

REPORT INFORMATION
  Report Type: Spontaneous
  Country: EU (occurrence: EU)
  Receive Date: 20250708
  Receipt Date: 20250708
  Transmission Date: 20251021
  Serious: Yes (Other)
  Sender: AMGEN
  Company Number: EU-AMGEN-ROUSP2025132129

PATIENT
  Age: 8 Year
  Sex: Male

DRUGS (5)
  1. BLINATUMOMAB [Suspect]
     Active Substance: BLINATUMOMAB
     Indication: Product used for unknown indication
     Dosage: 5 MICROGRAM/SQ. METER, QD (CONTINIOUS) (MAX 9 MICROGRAM/DAY)
     Route: 040
  2. BLINATUMOMAB [Suspect]
     Active Substance: BLINATUMOMAB
     Dosage: 15 MICROGRAM/SQ. METER, QD (CONTINIOUS) (MAX 28 MICROGRAM/DAY)
     Route: 040
  3. METHOTREXATE [Concomitant]
     Active Substance: METHOTREXATE
  4. CYTARABINE [Concomitant]
     Active Substance: CYTARABINE
  5. PREDNISOLONE [Concomitant]
     Active Substance: PREDNISOLONE

REACTIONS (3)
  - Haematotoxicity [Unknown]
  - Neurotoxicity [Unknown]
  - Orchidectomy [Unknown]
